FAERS Safety Report 5093694-1 (Version None)
Quarter: 2006Q3

REPORT INFORMATION
  Report Type: 
  Country: None (occurrence: None)
  Receive Date: 20060831
  Receipt Date: 20060821
  Transmission Date: 20061208
  Serious: Yes (Hospitalization)
  Sender: FDA-Public Use
  Company Number: PHRM2006FR02386

PATIENT
  Age: 82 Year
  Sex: Female
  Weight: 85 kg

DRUGS (10)
  1. CLAFORAN [Concomitant]
     Dosage: 1 G, TID
     Route: 042
     Dates: start: 20060219
  2. FLAGYL [Concomitant]
     Dates: start: 20060219
  3. RULID [Concomitant]
  4. ZESTORETIC [Concomitant]
     Indication: HYPERTENSION
     Route: 048
     Dates: end: 20060217
  5. ZESTRIL [Suspect]
     Indication: HYPERTENSION
     Dosage: 1 DF, TID
     Route: 048
     Dates: start: 20060218, end: 20060220
  6. ESIDRIX [Suspect]
     Indication: HYPERTENSION
     Dosage: 25 MG, QD
     Route: 048
     Dates: start: 20060218, end: 20060219
  7. EFFERALGAN CODEINE [Concomitant]
     Route: 048
     Dates: start: 20060218
  8. VOLTAREN [Suspect]
     Dosage: 100 MG, QD
     Route: 048
     Dates: end: 20060220
  9. AUGMENTIN [Suspect]
     Dosage: 1 G, QD
     Route: 042
     Dates: start: 20060217, end: 20060219
  10. LOVENOX [Concomitant]

REACTIONS (12)
  - BLOOD CREATININE INCREASED [None]
  - BLOOD UREA INCREASED [None]
  - BREATH SOUNDS ABNORMAL [None]
  - CHEST X-RAY ABNORMAL [None]
  - CREATININE RENAL CLEARANCE DECREASED [None]
  - FALL [None]
  - GENERAL PHYSICAL HEALTH DETERIORATION [None]
  - HYPERKALAEMIA [None]
  - INFLAMMATION [None]
  - LUNG DISORDER [None]
  - PYREXIA [None]
  - RENAL FAILURE ACUTE [None]
